FAERS Safety Report 20025746 (Version 1)
Quarter: 2021Q4

REPORT INFORMATION
  Report Type: Spontaneous
  Country: US (occurrence: US)
  Receive Date: 20211102
  Receipt Date: 20211102
  Transmission Date: 20220303
  Serious: No
  Sender: FDA-Public Use
  Company Number: US-PERRIGO-21US006785

PATIENT
  Age: 83 Year
  Sex: Female

DRUGS (3)
  1. ERYTHROMYCIN [Suspect]
     Active Substance: ERYTHROMYCIN
     Indication: Ocular hyperaemia
     Dosage: 1 CM RIBBON, QHS
     Route: 047
     Dates: start: 202105
  2. EYE DROPS                          /00256502/ [Concomitant]
     Indication: Ocular hyperaemia
     Dosage: UNK
     Route: 065
     Dates: start: 202105
  3. ELIQUIS [Concomitant]
     Active Substance: APIXABAN
     Indication: Deep vein thrombosis
     Dosage: UNK
     Route: 065
     Dates: start: 2020

REACTIONS (2)
  - Vision blurred [Not Recovered/Not Resolved]
  - Drug ineffective for unapproved indication [Unknown]

NARRATIVE: CASE EVENT DATE: 20210501
